FAERS Safety Report 6989624-5 (Version None)
Quarter: 2010Q3

REPORT INFORMATION
  Report Type: 
  Country: None (occurrence: None)
  Receive Date: 20100916
  Receipt Date: 20100203
  Transmission Date: 20110219
  Serious: Yes (Other)
  Sender: FDA-Public Use
  Company Number: SE-PFIZER INC-2010014702

PATIENT
  Sex: Male

DRUGS (1)
  1. LYRICA [Suspect]
     Indication: NEUROSIS
     Dosage: UNK
     Route: 048
     Dates: start: 20090601, end: 20090601

REACTIONS (1)
  - DRUG ABUSE [None]
